FAERS Safety Report 15659458 (Version 1)
Quarter: 2018Q4

REPORT INFORMATION
  Report Type: Spontaneous
  Country: BE (occurrence: BE)
  Receive Date: 20181127
  Receipt Date: 20181127
  Transmission Date: 20190205
  Serious: Yes (Death, Other)
  Sender: FDA-Public Use
  Company Number: BE-TAKEDA-2018TUS033851

PATIENT
  Age: 37 Year
  Sex: Male

DRUGS (1)
  1. ICLUSIG [Suspect]
     Active Substance: PONATINIB
     Indication: ACUTE LYMPHOCYTIC LEUKAEMIA
     Dosage: 30 MG, QD
     Route: 048
     Dates: start: 20160901, end: 20160904

REACTIONS (4)
  - Septic shock [Fatal]
  - Pneumonia [Fatal]
  - Febrile neutropenia [Fatal]
  - Acute respiratory failure [Fatal]

NARRATIVE: CASE EVENT DATE: 20160906
